FAERS Safety Report 5743827-6 (Version None)
Quarter: 2008Q2

REPORT INFORMATION
  Report Type: 
  Country: None (occurrence: None)
  Receive Date: 20080519
  Receipt Date: 20080519
  Transmission Date: 20081010
  Serious: Yes (Other)
  Sender: FDA-Public Use
  Company Number: None

PATIENT
  Age: 50 Year
  Sex: Female
  Weight: 63.05 kg

DRUGS (2)
  1. SINGULAIR [Suspect]
     Indication: ASTHMA
     Dosage: 10 MG       ONCE A DAY      PO
     Route: 048
     Dates: start: 20080514, end: 20080516
  2. SINGULAIR [Suspect]
     Indication: SEASONAL ALLERGY
     Dosage: 10 MG       ONCE A DAY      PO
     Route: 048
     Dates: start: 20080514, end: 20080516

REACTIONS (18)
  - ACTIVITIES OF DAILY LIVING IMPAIRED [None]
  - BACK PAIN [None]
  - BEDRIDDEN [None]
  - BODY TEMPERATURE FLUCTUATION [None]
  - CHILLS [None]
  - CONFUSIONAL STATE [None]
  - COUGH [None]
  - DYSPEPSIA [None]
  - DYSPNOEA [None]
  - EATING DISORDER [None]
  - EYE INFLAMMATION [None]
  - EYE PAIN [None]
  - FATIGUE [None]
  - FEELING HOT [None]
  - NASAL CONGESTION [None]
  - PAIN [None]
  - PHARYNGOLARYNGEAL PAIN [None]
  - PRURITUS [None]
